FAERS Safety Report 7608024-8 (Version None)
Quarter: 2011Q3

REPORT INFORMATION
  Report Type: 
  Country: None (occurrence: None)
  Receive Date: 20110714
  Receipt Date: 20110708
  Transmission Date: 20111222
  Serious: Yes (Death, Hospitalization)
  Sender: FDA-Public Use
  Company Number: JP-JNJFOC-20100901370

PATIENT
  Sex: Female
  Weight: 65 kg

DRUGS (17)
  1. DOXORUBICIN HCL [Suspect]
     Dosage: CYCLE 1
     Route: 042
     Dates: start: 20091110, end: 20091110
  2. LANSOPRAZOLE [Concomitant]
     Indication: GASTRIC ULCER
     Route: 048
     Dates: end: 20110103
  3. RESTAMIN [Concomitant]
     Indication: PALMAR-PLANTAR ERYTHRODYSAESTHESIA SYNDROME
     Route: 048
     Dates: start: 20091110
  4. DOXORUBICIN HCL [Suspect]
     Dosage: CYCLE 5
     Route: 042
     Dates: start: 20100302, end: 20100302
  5. DOXORUBICIN HCL [Suspect]
     Dosage: CYCLE 3
     Route: 042
     Dates: start: 20100105, end: 20100105
  6. LOXONIN [Concomitant]
     Indication: CANCER PAIN
     Route: 048
     Dates: start: 20091228
  7. HEPARIN [Concomitant]
     Indication: PROPHYLAXIS
     Route: 061
     Dates: start: 20091110
  8. DOXORUBICIN HCL [Suspect]
     Route: 042
     Dates: start: 20100608, end: 20100608
  9. DOXORUBICIN HCL [Suspect]
     Dosage: CYCLE 6
     Route: 042
     Dates: start: 20100406, end: 20100406
  10. DOXORUBICIN HCL [Suspect]
     Route: 042
     Dates: start: 20100817, end: 20100817
  11. LOXONIN [Concomitant]
     Indication: GASTRIC ULCER
     Route: 048
     Dates: start: 20091228
  12. KENALOG [Concomitant]
     Indication: STOMATITIS
     Route: 049
     Dates: start: 20091117, end: 20100105
  13. DOXORUBICIN HCL [Suspect]
     Indication: OVARIAN CANCER RECURRENT
     Route: 042
     Dates: start: 20100511, end: 20100511
  14. DOXORUBICIN HCL [Suspect]
     Dosage: CYCLE 2
     Route: 042
     Dates: start: 20091208, end: 20091208
  15. BIO-THREE [Concomitant]
     Indication: DIARRHOEA
     Route: 048
  16. DOXORUBICIN HCL [Suspect]
     Route: 042
     Dates: start: 20100713, end: 20100713
  17. DOXORUBICIN HCL [Suspect]
     Dosage: CYCLE 4
     Route: 042
     Dates: start: 20100202, end: 20100202

REACTIONS (3)
  - INFECTIOUS PERITONITIS [None]
  - OVARIAN CANCER RECURRENT [None]
  - C-REACTIVE PROTEIN INCREASED [None]
